FAERS Safety Report 7106404-0 (Version None)
Quarter: 2010Q4

REPORT INFORMATION
  Report Type: 
  Country: None (occurrence: None)
  Receive Date: 20101116
  Receipt Date: 20100727
  Transmission Date: 20110411
  Serious: No
  Sender: FDA-Public Use
  Company Number: US-PFIZER INC-2010094984

PATIENT
  Sex: Female

DRUGS (7)
  1. TOVIAZ [Suspect]
     Indication: HYPERTONIC BLADDER
     Dosage: 4 MG, 1X/DAY
     Route: 048
     Dates: start: 20100614
  2. PRAVASTATIN [Concomitant]
     Indication: BLOOD CHOLESTEROL INCREASED
     Dosage: 40 MG, 1X/DAY
  3. DIGOXIN [Concomitant]
     Dosage: 0.25 MG, 1X/DAY
  4. LASIX [Concomitant]
     Dosage: 40 MG, 1X/DAY
  5. LOSARTAN [Concomitant]
     Dosage: 50 MG, 1X/DAY
  6. KETOCONAZOLE [Concomitant]
     Dosage: 2 %, UNK
  7. TRIAMCINOLONE [Concomitant]
     Dosage: 0.1 %, UNK

REACTIONS (2)
  - DRUG INEFFECTIVE [None]
  - PRODUCT COLOUR ISSUE [None]
